FAERS Safety Report 7592903-4 (Version None)
Quarter: 2011Q3

REPORT INFORMATION
  Report Type: 
  Country: None (occurrence: None)
  Receive Date: 20110706
  Receipt Date: 20110627
  Transmission Date: 20111222
  Serious: Yes (Other)
  Sender: FDA-Public Use
  Company Number: NL-ROCHE-745468

PATIENT
  Sex: Male

DRUGS (4)
  1. MIRCERA [Suspect]
     Dosage: DOSE: 250/MONTH
     Route: 042
     Dates: start: 20090707, end: 20091222
  2. NEORECORMON [Suspect]
     Dosage: DOSE: 6000/WEEK
     Route: 058
     Dates: start: 20090120, end: 20090416
  3. NEORECORMON [Suspect]
     Dosage: DOSE: 10000/WEEK
     Route: 058
     Dates: start: 20091222, end: 20100201
  4. MIRCERA [Suspect]
     Dosage: DOSE: 100/MONTH
     Route: 042
     Dates: start: 20090416, end: 20090707

REACTIONS (1)
  - HAEMOGLOBIN DECREASED [None]
